FAERS Safety Report 17722553 (Version 1)
Quarter: 2020Q2

REPORT INFORMATION
  Report Type: Spontaneous
  Country: US (occurrence: US)
  Receive Date: 20200428
  Receipt Date: 20200428
  Transmission Date: 20200714
  Serious: Yes (Hospitalization)
  Sender: FDA-Public Use
  Company Number: None

PATIENT
  Age: 85 Year
  Sex: Male

DRUGS (1)
  1. ABIRATERONE (ABIRATERONE ACETATE 250MG TAB) [Suspect]
     Active Substance: ABIRATERONE ACETATE
     Indication: PROSTATE CANCER
     Dates: start: 20190926, end: 20191017

REACTIONS (2)
  - Ejection fraction decreased [None]
  - Cardiac failure congestive [None]

NARRATIVE: CASE EVENT DATE: 20191003
